FAERS Safety Report 5775717-7 (Version None)
Quarter: 2008Q2

REPORT INFORMATION
  Report Type: 
  Country: None (occurrence: None)
  Receive Date: 20080617
  Receipt Date: 20080605
  Transmission Date: 20081010
  Serious: Yes (Other)
  Sender: FDA-Public Use
  Company Number: SG-PFIZER INC-2008048438

PATIENT
  Age: 47 Year
  Sex: Male

DRUGS (2)
  1. PHENYTOIN [Suspect]
  2. OMEPRAZOLE [Suspect]

REACTIONS (1)
  - ERYTHEMA MULTIFORME [None]
